FAERS Safety Report 20229721 (Version 1)
Quarter: 2021Q4

REPORT INFORMATION
  Report Type: Other
  Country: US (occurrence: None)
  Receive Date: 20211226
  Receipt Date: 20211226
  Transmission Date: 20220303
  Serious: Yes (Hospitalization)
  Sender: FDA-Public Use
  Company Number: US-ROCHE-2982407

PATIENT
  Age: 24 Year
  Sex: Female

DRUGS (9)
  1. RITUXIMAB [Suspect]
     Active Substance: RITUXIMAB
     Indication: Systemic lupus erythematosus
     Route: 065
  2. MYCOPHENOLATE MOFETIL [Suspect]
     Active Substance: MYCOPHENOLATE MOFETIL
     Indication: Systemic lupus erythematosus
     Route: 065
  3. HYDROXYCHLOROQUINE [Suspect]
     Active Substance: HYDROXYCHLOROQUINE
     Indication: Systemic lupus erythematosus
     Route: 065
  4. PREDNISONE [Concomitant]
     Active Substance: PREDNISONE
  5. COLCHICINE [Concomitant]
     Active Substance: COLCHICINE
  6. PANTOPRAZOLE [Concomitant]
     Active Substance: PANTOPRAZOLE
  7. TORSEMIDE [Concomitant]
     Active Substance: TORSEMIDE
  8. ASPIRIN [Concomitant]
     Active Substance: ASPIRIN
  9. ANAKINRA [Concomitant]
     Active Substance: ANAKINRA
     Route: 058

REACTIONS (1)
  - Coronavirus infection [Unknown]
